FAERS Safety Report 7485125-9 (Version None)
Quarter: 2011Q2

REPORT INFORMATION
  Report Type: 
  Country: None (occurrence: None)
  Receive Date: 20110517
  Receipt Date: 20110512
  Transmission Date: 20111010
  Serious: Yes (Death, Other)
  Sender: FDA-Public Use
  Company Number: GB-ROCHE-776761

PATIENT
  Age: 46 Year
  Weight: 92 kg

DRUGS (2)
  1. HERCEPTIN [Suspect]
     Route: 065
     Dates: start: 20100501, end: 20110101
  2. TAMOXIFEN CITRATE [Concomitant]

REACTIONS (3)
  - CARDIAC FAILURE [None]
  - CARDIOTOXICITY [None]
  - EJECTION FRACTION DECREASED [None]
